FAERS Safety Report 5990772-7 (Version None)
Quarter: 2008Q4

REPORT INFORMATION
  Report Type: 
  Country: None (occurrence: None)
  Receive Date: 20081202
  Receipt Date: 20080305
  Transmission Date: 20090506
  Serious: Yes (Other)
  Sender: FDA-Public Use
  Company Number: WAES 0803USA00734

PATIENT
  Sex: Female

DRUGS (1)
  1. FOSAMAX [Suspect]
     Dosage: WKY/PO
     Route: 048

REACTIONS (5)
  - ASTHENIA [None]
  - JOINT SWELLING [None]
  - LOOSE TOOTH [None]
  - MUSCLE SPASMS [None]
  - MYALGIA [None]
